FAERS Safety Report 11279589 (Version 1)
Quarter: 2015Q3

REPORT INFORMATION
  Report Type: Spontaneous
  Country: BR (occurrence: BR)
  Receive Date: 20150717
  Receipt Date: 20150717
  Transmission Date: 20151125
  Serious: Yes (Hospitalization)
  Sender: FDA-Public Use
  Company Number: BR-ASTRAZENECA-2015SE68040

PATIENT
  Age: 1007 Day
  Sex: Male

DRUGS (6)
  1. PULMICORT TURBUHALER [Suspect]
     Active Substance: BUDESONIDE
     Indication: LARYNGITIS
     Dosage: 0.50MG/ML, 1 NEBUAMP AT NIGHT
     Route: 055
     Dates: start: 20150705
  2. PULMICORT TURBUHALER [Suspect]
     Active Substance: BUDESONIDE
     Indication: BRONCHOSPASM
     Dosage: 0.50MG/ML, 1 NEBUAMP AT NIGHT
     Route: 055
     Dates: start: 20150705
  3. PULMICORT TURBUHALER [Suspect]
     Active Substance: BUDESONIDE
     Indication: BRONCHOSPASM
     Dosage: 0.25MG/ML,  1 NEBUAMP BID
     Route: 055
     Dates: start: 20150630, end: 20150704
  4. PULMICORT TURBUHALER [Suspect]
     Active Substance: BUDESONIDE
     Indication: BRONCHOSPASM
     Dosage: 0.50MG/ML, 1 NEBUAMP BID
     Route: 055
     Dates: start: 20150705, end: 20150710
  5. PULMICORT TURBUHALER [Suspect]
     Active Substance: BUDESONIDE
     Indication: LARYNGITIS
     Dosage: 0.25MG/ML,  1 NEBUAMP BID
     Route: 055
     Dates: start: 20150630, end: 20150704
  6. PULMICORT TURBUHALER [Suspect]
     Active Substance: BUDESONIDE
     Indication: LARYNGITIS
     Dosage: 0.50MG/ML, 1 NEBUAMP BID
     Route: 055
     Dates: start: 20150705, end: 20150710

REACTIONS (3)
  - Product use issue [Not Recovered/Not Resolved]
  - Off label use [Not Recovered/Not Resolved]
  - Laryngitis [Recovered/Resolved]

NARRATIVE: CASE EVENT DATE: 20150630
